FAERS Safety Report 5546040-0 (Version None)
Quarter: 2007Q4

REPORT INFORMATION
  Report Type: 
  Country: None (occurrence: None)
  Receive Date: 20071211
  Receipt Date: 20070829
  Transmission Date: 20080405
  Serious: No
  Sender: FDA-Public Use
  Company Number: US-BRISTOL-MYERS SQUIBB COMPANY-13892765

PATIENT
  Age: 56 Year
  Sex: Female
  Weight: 71 kg

DRUGS (4)
  1. EMSAM [Suspect]
     Indication: DEPRESSION
     Dosage: EMSAM 6MG/24 WAS STARTED ON 29-JUL-07.
     Route: 062
  2. ZETIA [Concomitant]
  3. NEXIUM [Concomitant]
  4. LAMICTAL [Concomitant]

REACTIONS (1)
  - FATIGUE [None]
